FAERS Safety Report 5319702-8 (Version None)
Quarter: 2007Q2

REPORT INFORMATION
  Report Type: 
  Country: None (occurrence: None)
  Receive Date: 20070503
  Receipt Date: 20070424
  Transmission Date: 20071010
  Serious: Yes (Life-Threatening, Hospitalization)
  Sender: FDA-Public Use
  Company Number: 2007SP008044

PATIENT
  Age: 21 Year
  Sex: Male

DRUGS (3)
  1. LORATADINE [Suspect]
     Indication: DRUG USE FOR UNKNOWN INDICATION
     Dosage: 20 MG; PO
     Route: 048
     Dates: start: 20070402
  2. AUGMENTIN '125' [Concomitant]
  3. DICLOFENAC [Concomitant]

REACTIONS (2)
  - MUSCLE SPASMS [None]
  - MYOCARDIAL INFARCTION [None]
